FAERS Safety Report 4361796-0 (Version None)
Quarter: 2004Q2

REPORT INFORMATION
  Report Type: 
  Country: None (occurrence: None)
  Receive Date: 20040521
  Receipt Date: 20040315
  Transmission Date: 20050107
  Serious: No
  Sender: FDA-Public Use
  Company Number: US-GLAXOSMITHKLINE-A0502881A

PATIENT
  Age: 60 Year
  Sex: Female

DRUGS (1)
  1. WELLBUTRIN XL [Suspect]
     Dosage: 150MG TWICE PER DAY
     Route: 048
     Dates: start: 20040308

REACTIONS (1)
  - FEELING JITTERY [None]
